FAERS Safety Report 12318170 (Version 1)
Quarter: 2016Q2

REPORT INFORMATION
  Report Type: Spontaneous
  Country: CH (occurrence: CH)
  Receive Date: 20160429
  Receipt Date: 20160429
  Transmission Date: 20160815
  Serious: Yes (Other)
  Sender: FDA-Public Use
  Company Number: CH-TEVA-654793ISR

PATIENT
  Age: 21 Year
  Sex: Male

DRUGS (8)
  1. VANCOCIN [Suspect]
     Active Substance: VANCOMYCIN HYDROCHLORIDE
     Indication: SEPSIS
     Dosage: UNSPECIFIED STRENGTH
     Route: 065
     Dates: start: 20160314, end: 20160317
  2. CEFTRIAXONE. [Concomitant]
     Active Substance: CEFTRIAXONE
     Dosage: UNKNOWN IF ONGOING
     Dates: start: 20160322
  3. INVANZ [Suspect]
     Active Substance: ERTAPENEM SODIUM
     Indication: CHOLANGITIS
     Dosage: UNSPECIFIED STRENGTH
     Route: 065
     Dates: start: 20160309, end: 20160311
  4. VANCOCIN [Suspect]
     Active Substance: VANCOMYCIN HYDROCHLORIDE
     Indication: CHOLANGITIS
     Dosage: UNSPECIFIED STRENGTH
     Route: 065
     Dates: start: 20160309, end: 20160311
  5. VANCOCIN [Suspect]
     Active Substance: VANCOMYCIN HYDROCHLORIDE
     Dosage: UNSPECIFIED STRENGTH
     Route: 065
     Dates: start: 20160322, end: 20160324
  6. INVANZ [Suspect]
     Active Substance: ERTAPENEM SODIUM
     Dosage: UNSPECIFIED STRENGTH
     Route: 065
     Dates: start: 20160314, end: 20160317
  7. GENTAMYCIN [Concomitant]
     Active Substance: GENTAMICIN
     Dates: start: 20160317, end: 20160321
  8. CIPROFLOXACIN. [Concomitant]
     Active Substance: CIPROFLOXACIN
     Route: 048
     Dates: start: 201603, end: 20160314

REACTIONS (2)
  - Leukopenia [Unknown]
  - Neutrophil count decreased [Unknown]

NARRATIVE: CASE EVENT DATE: 20160316
